FAERS Safety Report 8458990-6 (Version None)
Quarter: 2012Q2

REPORT INFORMATION
  Report Type: 
  Country: None (occurrence: None)
  Receive Date: 20120622
  Receipt Date: 20120613
  Transmission Date: 20120825
  Serious: Yes (Other)
  Sender: FDA-Public Use
  Company Number: JP-BAYER-2012-059633

PATIENT
  Age: 87 Year
  Sex: Female

DRUGS (4)
  1. NEXAVAR [Suspect]
     Indication: HEPATIC NEOPLASM MALIGNANT
     Dosage: 400 MG, QD ON DAY 1- 28
     Route: 048
     Dates: start: 20110525
  2. CISPLATIN [Concomitant]
     Indication: HEPATIC NEOPLASM MALIGNANT
     Dosage: 30 MG/M2, QD ON DAY 1, 8 AND 15
     Route: 025
  3. CISPLATIN [Concomitant]
     Indication: PORTAL VEIN THROMBOSIS
  4. NEXAVAR [Suspect]
     Dosage: 200 MG, QD
     Route: 048
     Dates: end: 20120201

REACTIONS (4)
  - ASCITES [None]
  - PLEURAL EFFUSION [None]
  - PLATELET COUNT DECREASED [None]
  - HYPERTENSION [None]
